FAERS Safety Report 24823169 (Version 1)
Quarter: 2025Q1

REPORT INFORMATION
  Report Type: Report from Study
  Country: KR (occurrence: KR)
  Receive Date: 20250109
  Receipt Date: 20250109
  Transmission Date: 20250409
  Serious: Yes (Other)
  Sender: ALEXION PHARMACEUTICALS
  Company Number: KR-ASTRAZENECA-202501GLO001894KR

PATIENT
  Age: 57 Year

DRUGS (10)
  1. OSIMERTINIB [Suspect]
     Active Substance: OSIMERTINIB
     Indication: Non-small cell lung cancer
     Dosage: 80 MILLIGRAM, QD
     Route: 065
  2. OSIMERTINIB [Suspect]
     Active Substance: OSIMERTINIB
     Dosage: 80 MILLIGRAM, QD
     Route: 065
  3. OSIMERTINIB [Suspect]
     Active Substance: OSIMERTINIB
     Dosage: 80 MILLIGRAM, QD
     Route: 065
  4. OSIMERTINIB [Suspect]
     Active Substance: OSIMERTINIB
     Dosage: 80 MILLIGRAM, QD
     Route: 065
  5. GEFITINIB [Suspect]
     Active Substance: GEFITINIB
     Indication: Non-small cell lung cancer
     Route: 065
  6. GEFITINIB [Suspect]
     Active Substance: GEFITINIB
     Route: 065
  7. GEFITINIB [Suspect]
     Active Substance: GEFITINIB
     Route: 065
  8. GEFITINIB [Suspect]
     Active Substance: GEFITINIB
     Route: 065
  9. SAVOLITINIB [Concomitant]
     Active Substance: SAVOLITINIB
     Indication: Non-small cell lung cancer
     Dosage: 600 MILLIGRAM, QD
     Route: 065
  10. SAVOLITINIB [Concomitant]
     Active Substance: SAVOLITINIB
     Dosage: 600 MILLIGRAM, QD
     Route: 065

REACTIONS (5)
  - Malignant neoplasm progression [Unknown]
  - Drug resistance [Unknown]
  - Acquired gene mutation [Unknown]
  - Metastases to central nervous system [Unknown]
  - Metastases to lung [Unknown]
